FAERS Safety Report 10207536 (Version 1)
Quarter: 2014Q2

REPORT INFORMATION
  Report Type: Spontaneous
  Country: US (occurrence: US)
  Receive Date: 20140530
  Receipt Date: 20140530
  Transmission Date: 20141212
  Serious: No
  Sender: FDA-Public Use
  Company Number: US-GLAXOSMITHKLINE-A1048688A

PATIENT
  Age: 72 Year
  Sex: Male

DRUGS (8)
  1. VENTOLIN [Suspect]
     Indication: CHRONIC OBSTRUCTIVE PULMONARY DISEASE
     Dosage: 1PUFF FIVE TIMES PER DAY
     Route: 055
     Dates: start: 20131021
  2. FISH OIL [Concomitant]
  3. ICAPS [Concomitant]
  4. TRICOR [Concomitant]
  5. HYDRALAZINE [Concomitant]
  6. METFORMIN [Concomitant]
  7. ZOCOR [Concomitant]
  8. ZIAC [Concomitant]

REACTIONS (4)
  - Dyspnoea [Not Recovered/Not Resolved]
  - Cough [Unknown]
  - Multiple allergies [Unknown]
  - Product quality issue [Unknown]
